FAERS Safety Report 11043581 (Version 1)
Quarter: 2015Q2

REPORT INFORMATION
  Report Type: Spontaneous
  Country: US (occurrence: US)
  Receive Date: 20150417
  Receipt Date: 20150417
  Transmission Date: 20150821
  Serious: Yes (Disabling, Other)
  Sender: FDA-Public Use
  Company Number: US-SA-2015SA046555

PATIENT
  Age: 56 Year
  Sex: Female

DRUGS (12)
  1. PLAVIX [Interacting]
     Active Substance: CLOPIDOGREL BISULFATE
     Indication: INTRACRANIAL ANEURYSM
     Route: 065
     Dates: start: 201501, end: 20150219
  2. OSPHENA [Interacting]
     Active Substance: OSPEMIFENE
     Indication: DYSPAREUNIA
     Route: 065
     Dates: start: 2014, end: 20141208
  3. LEVOXYL [Concomitant]
     Active Substance: LEVOTHYROXINE SODIUM
  4. PROTONIX [Concomitant]
     Active Substance: PANTOPRAZOLE SODIUM
  5. HYDROCODONE [Concomitant]
     Active Substance: HYDROCODONE
  6. PLAVIX [Suspect]
     Active Substance: CLOPIDOGREL BISULFATE
     Indication: INTRACRANIAL ANEURYSM
     Route: 065
     Dates: start: 2013, end: 20141208
  7. MELATONIN [Concomitant]
     Active Substance: MELATONIN
  8. PRAVASTATIN [Concomitant]
     Active Substance: PRAVASTATIN\PRAVASTATIN SODIUM
  9. IMITREX [Concomitant]
     Active Substance: SUMATRIPTAN\SUMATRIPTAN SUCCINATE
  10. XANAX [Concomitant]
     Active Substance: ALPRAZOLAM
  11. LUNESTA [Concomitant]
     Active Substance: ESZOPICLONE
  12. OSPHENA [Interacting]
     Active Substance: OSPEMIFENE
     Indication: DYSPAREUNIA
     Route: 065
     Dates: start: 201501, end: 20150218

REACTIONS (24)
  - Asthenopia [Not Recovered/Not Resolved]
  - Influenza like illness [Recovered/Resolved]
  - Lethargy [Recovered/Resolved]
  - Respiratory tract congestion [Recovered/Resolved]
  - Fall [Unknown]
  - Nasal congestion [Recovered/Resolved]
  - Eye swelling [Recovered/Resolved]
  - Joint dislocation [Not Recovered/Not Resolved]
  - Vaginal discharge [Recovered/Resolved]
  - Arthralgia [Not Recovered/Not Resolved]
  - Sinus headache [Recovered/Resolved]
  - Drug interaction [Unknown]
  - Stent placement [Unknown]
  - Blindness transient [Recovered/Resolved]
  - Brain operation [Unknown]
  - Impaired work ability [Unknown]
  - Fatigue [Not Recovered/Not Resolved]
  - Thrombosis [Recovered/Resolved]
  - Insomnia [Recovered/Resolved]
  - Ear infection [Recovered/Resolved]
  - Vision blurred [Not Recovered/Not Resolved]
  - Foot fracture [Not Recovered/Not Resolved]
  - Tinnitus [Recovered/Resolved]
  - Confusional state [Not Recovered/Not Resolved]

NARRATIVE: CASE EVENT DATE: 201406
